FAERS Safety Report 14559271 (Version 2)
Quarter: 2018Q2

REPORT INFORMATION
  Report Type: Spontaneous
  Country: GR (occurrence: GR)
  Receive Date: 20180221
  Receipt Date: 20180426
  Transmission Date: 20180711
  Serious: Yes (Hospitalization, Other)
  Sender: FDA-Public Use
  Company Number: GR-BAUSCH-BL-2016-009350

PATIENT
  Age: 70 Year
  Sex: Male

DRUGS (18)
  1. RAMIPRIL. [Suspect]
     Active Substance: RAMIPRIL
     Indication: DRUG THERAPY
  2. DIGOXIN. [Suspect]
     Active Substance: DIGOXIN
     Indication: CARDIAC FAILURE
     Route: 065
  3. EPLERENONE. [Suspect]
     Active Substance: EPLERENONE
     Indication: HYPERTENSION
  4. CARVEDILOL. [Suspect]
     Active Substance: CARVEDILOL
     Indication: CARDIAC FAILURE
     Route: 065
  5. RIVAROXABAN [Suspect]
     Active Substance: RIVAROXABAN
     Indication: DRUG THERAPY
  6. NITROGLYCERINE [Suspect]
     Active Substance: NITROGLYCERIN
     Indication: NITRATE COMPOUND THERAPY
     Route: 065
  7. RAMIPRIL. [Suspect]
     Active Substance: RAMIPRIL
     Indication: CARDIAC FAILURE
     Route: 065
  8. CARVEDILOL. [Suspect]
     Active Substance: CARVEDILOL
     Indication: HYPERTENSION
  9. RIVAROXABAN [Suspect]
     Active Substance: RIVAROXABAN
     Indication: CARDIAC FAILURE
     Route: 065
  10. NITROGLYCERINE [Suspect]
     Active Substance: NITROGLYCERIN
     Indication: CARDIAC FAILURE
  11. RAMIPRIL. [Suspect]
     Active Substance: RAMIPRIL
     Indication: HYPERTENSION
  12. FUROSEMIDE. [Suspect]
     Active Substance: FUROSEMIDE
     Indication: DIURETIC THERAPY
  13. RIVAROXABAN [Suspect]
     Active Substance: RIVAROXABAN
     Indication: ATRIAL FIBRILLATION
  14. EPLERENONE. [Suspect]
     Active Substance: EPLERENONE
     Indication: CARDIAC FAILURE
     Route: 065
  15. EPLERENONE. [Suspect]
     Active Substance: EPLERENONE
     Indication: DIURETIC THERAPY
  16. FUROSEMIDE. [Suspect]
     Active Substance: FUROSEMIDE
     Indication: CARDIAC FAILURE
     Route: 065
  17. FUROSEMIDE. [Suspect]
     Active Substance: FUROSEMIDE
     Indication: HYPERTENSION
  18. CARVEDILOL. [Suspect]
     Active Substance: CARVEDILOL
     Indication: DRUG THERAPY

REACTIONS (10)
  - Fatigue [Unknown]
  - Abdominal rigidity [Unknown]
  - Atrial fibrillation [Unknown]
  - Treatment failure [Unknown]
  - Renal impairment [Unknown]
  - Bundle branch block left [Unknown]
  - Cardiac failure [Unknown]
  - Orthopnoea [Unknown]
  - Liver palpable [Unknown]
  - Disease progression [Unknown]
